FAERS Safety Report 7921045-0 (Version None)
Quarter: 2011Q4

REPORT INFORMATION
  Report Type: 
  Country: None (occurrence: None)
  Receive Date: 20111117
  Receipt Date: 20111110
  Transmission Date: 20120403
  Serious: Yes (Other)
  Sender: FDA-Public Use
  Company Number: US-UCBSA-044444

PATIENT
  Age: 55 Year
  Sex: Female
  Weight: 92 kg

DRUGS (13)
  1. OMEPRAZOLE [Concomitant]
     Indication: ABDOMINAL DISCOMFORT
     Route: 048
     Dates: start: 20110401, end: 20110101
  2. CITALOPRAM HYDROBROMIDE [Concomitant]
     Indication: DEPRESSION
     Route: 048
     Dates: start: 20100101
  3. ADVAIR DISKUS 100/50 [Concomitant]
     Indication: ASTHMA
     Dosage: ONE PUFF BID
     Route: 048
  4. AMITRIPTYLINE HCL [Concomitant]
     Indication: INSOMNIA
     Route: 048
     Dates: start: 20070101
  5. AMITRIPTYLINE HCL [Concomitant]
     Dosage: ONE AT HS.
     Route: 048
     Dates: start: 20100101
  6. SIMVASTATIN [Concomitant]
     Indication: BLOOD CHOLESTEROL INCREASED
     Route: 048
     Dates: start: 20090101
  7. FOLIC ACID [Concomitant]
     Indication: VITAMIN SUPPLEMENTATION
     Route: 048
  8. OMEPRAZOLE [Concomitant]
     Route: 048
     Dates: start: 20111019
  9. AMITRIPTYLINE HCL [Concomitant]
     Indication: RHEUMATOID ARTHRITIS
     Route: 048
     Dates: start: 20070101
  10. CIMZIA [Suspect]
     Indication: RHEUMATOID ARTHRITIS
     Route: 058
     Dates: start: 20110921
  11. ATENOLOL [Concomitant]
     Indication: MITRAL VALVE PROLAPSE
     Dosage: SINCE 5 YEARS
     Route: 048
  12. METHOTREXATE [Concomitant]
     Indication: RHEUMATOID ARTHRITIS
     Dosage: 8 TABLETS EVERY WEEK, 200 MG WEEKLY
     Route: 048
     Dates: start: 20080101
  13. AMITRIPTYLINE HCL [Concomitant]
     Dosage: ONE AT HS.
     Route: 048
     Dates: start: 20100101

REACTIONS (1)
  - HERPES ZOSTER [None]
